FAERS Safety Report 8590108-1 (Version None)
Quarter: 2012Q3

REPORT INFORMATION
  Report Type: 
  Country: None (occurrence: None)
  Receive Date: 20120813
  Receipt Date: 20120808
  Transmission Date: 20120928
  Serious: Yes (Life-Threatening, Hospitalization, Other)
  Sender: FDA-Public Use
  Company Number: US-ROCHE-1018534

PATIENT
  Sex: Female
  Weight: 63.106 kg

DRUGS (13)
  1. BACTRIM DS [Concomitant]
     Route: 048
  2. AZATHIOPRINE SODIUM [Concomitant]
     Indication: RHEUMATOID ARTHRITIS
     Dosage: 2 TABLETS EVERY DAY
     Route: 048
     Dates: start: 20110906, end: 20110928
  3. TRAZODONE HCL [Concomitant]
     Indication: INSOMNIA
     Route: 048
     Dates: start: 20090403, end: 20120106
  4. TRAZODONE HCL [Concomitant]
     Route: 048
     Dates: start: 20090403, end: 20120104
  5. INSULIN S [Concomitant]
  6. METHYLPREDNISOLONE [Concomitant]
     Indication: RHEUMATOID ARTHRITIS
     Dosage: 2 TAB 4 TIME/DAY FOR 1 WEEK, THEN 1 TAB 4 TIME/DAY FOR 1 WEEK, THEN 1 TAB DAILY FOR 1 WEEK
     Route: 048
     Dates: start: 20111027, end: 20111205
  7. TRAMADOL HCL [Concomitant]
     Indication: PAIN
     Dosage: 1-2 TABLETS EVERY 6 HOURS AS NEEDED
     Route: 048
     Dates: start: 20110524, end: 20111110
  8. ACTEMRA [Suspect]
     Indication: RHEUMATOID ARTHRITIS
     Route: 042
     Dates: start: 20111111, end: 20111125
  9. METHYLPREDNISOLONE [Concomitant]
     Route: 048
     Dates: start: 20111121, end: 20111205
  10. ACTEMRA [Suspect]
     Dosage: DOSE - 8
     Dates: start: 20111125
  11. PREDNISOLONE [Concomitant]
     Indication: RHEUMATOID ARTHRITIS
     Route: 048
     Dates: start: 20111205
  12. ATENOLOL [Concomitant]
     Indication: HYPERTENSION
     Dosage: EVERY DAY
     Route: 048
     Dates: start: 20110910, end: 20111110
  13. LISINOPRIL [Concomitant]
     Indication: HYPERTENSION
     Route: 048
     Dates: start: 20120106

REACTIONS (3)
  - HAEMATOMA [None]
  - PAIN IN EXTREMITY [None]
  - OEDEMA PERIPHERAL [None]
